FAERS Safety Report 17856692 (Version 1)
Quarter: 2020Q2

REPORT INFORMATION
  Report Type: Spontaneous
  Country: JP (occurrence: JP)
  Receive Date: 20200603
  Receipt Date: 20200603
  Transmission Date: 20200714
  Serious: Yes (Hospitalization, Other)
  Sender: FDA-Public Use
  Company Number: JP-ASTRAZENECA-2020SE44158

PATIENT
  Age: 58 Year
  Sex: Female
  Weight: 64 kg

DRUGS (21)
  1. AMLODIPINE [Concomitant]
     Active Substance: AMLODIPINE BESYLATE
     Indication: HYPERTENSION
     Route: 048
     Dates: start: 201511
  2. MAGNESIUM OXIDE. [Concomitant]
     Active Substance: MAGNESIUM OXIDE
     Indication: CONSTIPATION
     Route: 048
     Dates: start: 201512
  3. DEXART [Concomitant]
     Active Substance: DEXAMETHASONE SODIUM PHOSPHATE
     Indication: COLON CANCER
     Route: 042
     Dates: start: 20191126
  4. LYRICA [Concomitant]
     Active Substance: PREGABALIN
     Indication: NEUROPATHY PERIPHERAL
     Route: 048
     Dates: start: 20170815
  5. ALOXI [Concomitant]
     Active Substance: PALONOSETRON HYDROCHLORIDE
     Indication: COLON CANCER
     Route: 042
     Dates: start: 20191126
  6. AVASTIN [Concomitant]
     Active Substance: BEVACIZUMAB
     Indication: COLON CANCER
     Route: 041
     Dates: start: 20191126
  7. FLUOROURACIL. [Concomitant]
     Active Substance: FLUOROURACIL
     Indication: COLON CANCER
     Route: 042
     Dates: start: 20191126
  8. EPIRUBICIN HYDROCHLORIDE. [Concomitant]
     Active Substance: EPIRUBICIN HYDROCHLORIDE
     Dosage: DOSE UNKNOWN, 4 COURSES IN TOTAL
     Route: 065
     Dates: start: 20190807
  9. VERZENIO [Suspect]
     Active Substance: ABEMACICLIB
     Dosage: DOSE AND FREQUENCY UNKNOWN
     Route: 048
     Dates: start: 20190723
  10. VERZENIO [Suspect]
     Active Substance: ABEMACICLIB
     Dosage: DOSE AND FREQUENCY UNKNOWN
     Route: 048
  11. VERZENIO [Suspect]
     Active Substance: ABEMACICLIB
     Dosage: DOSE AND FREQUENCY UNKNOWN
     Route: 048
     Dates: start: 20190620, end: 20190625
  12. IRINOTECAN HYDROCHLORIDE HYDRATE [Concomitant]
     Active Substance: IRINOTECAN HYDROCHLORIDE
     Indication: COLON CANCER
     Route: 042
     Dates: start: 20191126
  13. FLUOROURACIL. [Concomitant]
     Active Substance: FLUOROURACIL
     Indication: COLON CANCER
     Route: 042
     Dates: start: 20191126
  14. DECADRON [Concomitant]
     Active Substance: DEXAMETHASONE
     Indication: COLON CANCER
     Route: 048
     Dates: start: 20191126
  15. VERZENIO [Suspect]
     Active Substance: ABEMACICLIB
     Dosage: DOSE AND FREQUENCY UNKNOWN
     Route: 048
     Dates: start: 20190531, end: 20190605
  16. CYCLOPHOSPHAMIDE HYDRATE [Concomitant]
     Active Substance: CYCLOPHOSPHAMIDE
     Dosage: DOSE UNKNOWN, 4 COURSES IN TOTAL
     Route: 065
     Dates: start: 20190807
  17. LETROZOLE. [Concomitant]
     Active Substance: LETROZOLE
     Dosage: DOSE AND FREQUENCY UNKNOWN
     Route: 065
     Dates: start: 201512
  18. MIYA-BM [Concomitant]
     Active Substance: CLOSTRIDIUM BUTYRICUM SPORES STRAIN M-55
     Route: 048
     Dates: start: 201905
  19. LEVOFOLINATE [Concomitant]
     Active Substance: LEVOLEUCOVORIN CALCIUM
     Route: 042
     Dates: start: 20191126
  20. APREPITANT. [Concomitant]
     Active Substance: APREPITANT
     Indication: COLON CANCER
     Route: 048
     Dates: start: 20191126
  21. FASLODEX [Suspect]
     Active Substance: FULVESTRANT
     Indication: BREAST CANCER FEMALE
     Route: 030
     Dates: start: 20190528, end: 20200324

REACTIONS (7)
  - Colon cancer [Unknown]
  - Diarrhoea [Unknown]
  - Administration site necrosis [Unknown]
  - Abdominal pain [Unknown]
  - Vomiting [Unknown]
  - Administration site induration [Unknown]
  - Abdominal pain upper [Unknown]

NARRATIVE: CASE EVENT DATE: 20190605
